FAERS Safety Report 22060951 (Version 1)
Quarter: 2023Q1

REPORT INFORMATION
  Report Type: Spontaneous
  Country: CN (occurrence: CN)
  Receive Date: 20230303
  Receipt Date: 20230303
  Transmission Date: 20230417
  Serious: Yes (Hospitalization)
  Sender: FDA-Public Use
  Company Number: CN-PFIZER INC-PV202300040284

PATIENT
  Age: 6 Year
  Sex: Male
  Weight: 29 kg

DRUGS (2)
  1. CYTARABINE [Suspect]
     Active Substance: CYTARABINE
     Indication: Acute lymphocytic leukaemia
     Dosage: 67 MG, 1X/DAY
     Route: 041
     Dates: start: 20230205, end: 20230208
  2. CYTARABINE [Suspect]
     Active Substance: CYTARABINE
     Dosage: 67 MG, 1X/DAY
     Route: 041
     Dates: start: 20230212, end: 20230215

REACTIONS (5)
  - Myelosuppression [Not Recovered/Not Resolved]
  - Cough [Not Recovered/Not Resolved]
  - Productive cough [Not Recovered/Not Resolved]
  - Neutrophil count decreased [Not Recovered/Not Resolved]
  - Pyrexia [Not Recovered/Not Resolved]

NARRATIVE: CASE EVENT DATE: 20230213
